FAERS Safety Report 7049383-7 (Version None)
Quarter: 2010Q4

REPORT INFORMATION
  Report Type: 
  Country: None (occurrence: None)
  Receive Date: 20101018
  Receipt Date: 20101007
  Transmission Date: 20110411
  Serious: Yes (Hospitalization)
  Sender: FDA-Public Use
  Company Number: US-ROCHE-731959

PATIENT
  Sex: Male
  Weight: 100 kg

DRUGS (7)
  1. PEGASYS [Suspect]
     Indication: HEPATITIS
     Dosage: DATE OF USE: 22 WEEKS
     Route: 058
  2. COPEGUS [Suspect]
     Indication: HEPATITIS
     Dosage: DATE OF USE: 22 WEEKS
     Route: 048
  3. REQUIP [Concomitant]
  4. AMANTADINE [Concomitant]
  5. GABAPENTIN [Concomitant]
  6. CITALOPRAM HYDROBROMIDE [Concomitant]
  7. MINOCYCLINE HCL [Concomitant]

REACTIONS (2)
  - PULMONARY EMBOLISM [None]
  - THROMBOSIS [None]
